FAERS Safety Report 6298180-9 (Version None)
Quarter: 2009Q3

REPORT INFORMATION
  Report Type: 
  Country: None (occurrence: None)
  Receive Date: 20090805
  Receipt Date: 20090722
  Transmission Date: 20100115
  Serious: Yes (Hospitalization)
  Sender: FDA-Public Use
  Company Number: CH-MYLANLABS-2009S1012911

PATIENT
  Age: 36 Year
  Sex: Female

DRUGS (5)
  1. MIRTAZAPINE [Suspect]
     Indication: DEPRESSION
     Dosage: 30 MG/DAY
  2. PANTOPRAZOLE SODIUM [Suspect]
     Indication: GASTROOESOPHAGEAL REFLUX DISEASE
  3. IRON POLYMALTOSE [Concomitant]
     Indication: IRON DEFICIENCY
     Dosage: 20 MG/DAY
  4. CALCIUM [Concomitant]
     Indication: CALCIUM DEFICIENCY
     Dosage: DOSAGE NOT STATED
  5. ALENDRONIC ACID [Concomitant]
     Dosage: 70 MG/WEEK

REACTIONS (2)
  - BUNDLE BRANCH BLOCK LEFT [None]
  - PANCYTOPENIA [None]
